FAERS Safety Report 5420992-1 (Version None)
Quarter: 2007Q3

REPORT INFORMATION
  Report Type: 
  Country: None (occurrence: None)
  Receive Date: 20070817
  Receipt Date: 20070810
  Transmission Date: 20080115
  Serious: Yes (Hospitalization, Other)
  Sender: FDA-Public Use
  Company Number: 2007SP013876

PATIENT
  Age: 53 Year
  Sex: Female

DRUGS (5)
  1. PEG-INTRON [Suspect]
     Indication: HEPATITIS C
     Dosage: SC
     Route: 058
     Dates: start: 20060908, end: 20070101
  2. RIBAVIRIN [Suspect]
     Indication: HEPATITIS C
     Dosage: PO
     Route: 048
     Dates: start: 20060908, end: 20070101
  3. LASIX [Concomitant]
  4. ADACTONE [Concomitant]
  5. POTASSIUM SUPPLEMENT [Concomitant]

REACTIONS (8)
  - DRY MOUTH [None]
  - FALL [None]
  - LOSS OF CONSCIOUSNESS [None]
  - MONARTHRITIS [None]
  - SUBDURAL HAEMATOMA [None]
  - TENDON OPERATION [None]
  - VISION BLURRED [None]
  - WEIGHT DECREASED [None]
